FAERS Safety Report 6087707-8 (Version None)
Quarter: 2009Q1

REPORT INFORMATION
  Report Type: 
  Country: None (occurrence: None)
  Receive Date: 20090223
  Receipt Date: 20090210
  Transmission Date: 20090719
  Serious: Yes (Hospitalization)
  Sender: FDA-Public Use
  Company Number: ES-ROCHE-613563

PATIENT
  Age: 71 Year
  Sex: Female

DRUGS (10)
  1. MYCOPHENOLATE MOFETIL [Suspect]
     Indication: RENAL TRANSPLANT
     Dosage: FREQUENCY: DAY
     Route: 048
     Dates: start: 20081104
  2. PREDNISONE TAB [Suspect]
     Indication: RENAL TRANSPLANT
     Dosage: FREQUENCY: DAY
     Route: 048
     Dates: start: 20081110
  3. PROGRAF [Suspect]
     Indication: RENAL TRANSPLANT
     Dosage: FREQUENCY: DAY
     Route: 048
     Dates: start: 20081104
  4. OMEPRAZOLE [Concomitant]
     Indication: PROPHYLAXIS
     Dosage: FREQUENCY: DAY
     Route: 048
     Dates: start: 20081114
  5. APOCARD [Concomitant]
     Indication: WOLFF-PARKINSON-WHITE SYNDROME
     Dosage: FREQUENCY: DAY
     Route: 048
     Dates: start: 20081114
  6. ARANESP [Concomitant]
     Indication: ANAEMIA
     Dosage: FREQUENCY: WEEK
     Route: 058
     Dates: start: 20081114
  7. MASTICAL [Concomitant]
     Indication: PROPHYLAXIS
     Route: 048
     Dates: start: 20081114
  8. PRANDIN [Concomitant]
     Route: 048
     Dates: start: 20081114
  9. ROCALTROL [Concomitant]
     Indication: HYPERPARATHYROIDISM
     Dosage: FREQUENCY: DAY
     Route: 048
     Dates: start: 20081114
  10. SEPTRIN FORTE [Concomitant]
     Indication: PROPHYLAXIS
     Route: 048
     Dates: start: 20081114

REACTIONS (2)
  - DEEP VEIN THROMBOSIS [None]
  - LYMPHOCELE [None]
